FAERS Safety Report 18669099 (Version 1)
Quarter: 2020Q4

REPORT INFORMATION
  Report Type: Spontaneous
  Country: US (occurrence: US)
  Receive Date: 20201228
  Receipt Date: 20201228
  Transmission Date: 20210114
  Serious: No
  Sender: FDA-Public Use
  Company Number: US-ASTRAZENECA-2020SF64032

PATIENT
  Sex: Female

DRUGS (2)
  1. FASENRA [Concomitant]
     Active Substance: BENRALIZUMAB
  2. SYMBICORT [Suspect]
     Active Substance: BUDESONIDE\FORMOTEROL FUMARATE DIHYDRATE
     Indication: ASTHMA
     Dosage: 160/4.5MCG, TWO PUFFS IN THE MORNING AND TWO PUFFS AT NIGHT
     Route: 055
     Dates: start: 202010

REACTIONS (4)
  - Wheezing [Unknown]
  - Intentional misuse of drug delivery system [Unknown]
  - Intentional product misuse [Unknown]
  - Drug dose omission by device [Unknown]
